FAERS Safety Report 14869429 (Version 2)
Quarter: 2018Q3

REPORT INFORMATION
  Report Type: Spontaneous
  Country: US (occurrence: US)
  Receive Date: 20180509
  Receipt Date: 20180803
  Transmission Date: 20181010
  Serious: No
  Sender: FDA-Public Use
  Company Number: US-ASTRAZENECA-2018SE46837

PATIENT
  Age: 773 Month
  Sex: Female
  Weight: 54.4 kg

DRUGS (11)
  1. TAGRISSO [Suspect]
     Active Substance: OSIMERTINIB
     Indication: METASTASES TO CENTRAL NERVOUS SYSTEM
     Route: 048
     Dates: start: 20180405
  2. LORAZEPAM. [Concomitant]
     Active Substance: LORAZEPAM
  3. TRAMADOL. [Concomitant]
     Active Substance: TRAMADOL
  4. TAGRISSO [Suspect]
     Active Substance: OSIMERTINIB
     Indication: LUNG CARCINOMA CELL TYPE UNSPECIFIED STAGE 0
     Route: 048
     Dates: start: 20180405
  5. TAGRISSO [Suspect]
     Active Substance: OSIMERTINIB
     Indication: BIOPSY LIVER ABNORMAL
     Route: 048
     Dates: start: 20180405
  6. TAGRISSO [Suspect]
     Active Substance: OSIMERTINIB
     Indication: METASTASES TO CENTRAL NERVOUS SYSTEM
     Route: 048
     Dates: start: 20180405
  7. CLINDAMYCIN. [Concomitant]
     Active Substance: CLINDAMYCIN
  8. EXCEDRIN [Concomitant]
     Active Substance: ACETAMINOPHEN\ASPIRIN\CAFFEINE
  9. TAGRISSO [Suspect]
     Active Substance: OSIMERTINIB
     Indication: BIOPSY LIVER ABNORMAL
     Route: 048
     Dates: start: 20180405
  10. TAGRISSO [Suspect]
     Active Substance: OSIMERTINIB
     Indication: LUNG CARCINOMA CELL TYPE UNSPECIFIED STAGE 0
     Route: 048
     Dates: start: 20180405
  11. TYLENON [Concomitant]

REACTIONS (16)
  - Abdominal discomfort [Not Recovered/Not Resolved]
  - Gastrointestinal motility disorder [Recovering/Resolving]
  - Nausea [Unknown]
  - Headache [Recovered/Resolved]
  - Abdominal pain upper [Not Recovered/Not Resolved]
  - Back pain [Not Recovered/Not Resolved]
  - Diarrhoea [Not Recovered/Not Resolved]
  - Fatigue [Not Recovered/Not Resolved]
  - Erythema [Not Recovered/Not Resolved]
  - Off label use [Unknown]
  - Pain in extremity [Recovered/Resolved]
  - Pruritus [Not Recovered/Not Resolved]
  - Skin burning sensation [Not Recovered/Not Resolved]
  - Skin fissures [Unknown]
  - Musculoskeletal stiffness [Unknown]
  - Product use in unapproved indication [Unknown]

NARRATIVE: CASE EVENT DATE: 201804
